FAERS Safety Report 17566686 (Version 2)
Quarter: 2020Q3

REPORT INFORMATION
  Report Type: Spontaneous
  Country: US (occurrence: US)
  Receive Date: 20200320
  Receipt Date: 20200724
  Transmission Date: 20201102
  Serious: Yes (Hospitalization, Other)
  Sender: FDA-Public Use
  Company Number: US-009507513-2003USA005699

PATIENT
  Age: 34 Year
  Sex: Female
  Weight: 120.2 kg

DRUGS (3)
  1. IMPLANON [Suspect]
     Active Substance: ETONOGESTREL
     Indication: CONTRACEPTION
     Dosage: 1 IMPLANT
     Route: 059
     Dates: end: 20200310
  2. ZYPREXA [Suspect]
     Active Substance: OLANZAPINE
     Dosage: UNK
  3. SIMETHICONE (DIMETHICONE) [Suspect]
     Active Substance: DIMETHICONE
     Dosage: UNK

REACTIONS (4)
  - Unintended pregnancy [Recovered/Resolved]
  - Incorrect product administration duration [Unknown]
  - Pregnancy with implant contraceptive [Recovered/Resolved]
  - Caesarean section [Unknown]

NARRATIVE: CASE EVENT DATE: 202003
